FAERS Safety Report 4428631-3 (Version None)
Quarter: 2004Q3

REPORT INFORMATION
  Report Type: 
  Country: None (occurrence: None)
  Receive Date: 20040818
  Receipt Date: 20030718
  Transmission Date: 20050211
  Serious: No
  Sender: FDA-Public Use
  Company Number: US-BRISTOL-MYERS SQUIBB COMPANY-12330056

PATIENT
  Age: 41 Year
  Sex: Female
  Weight: 68 kg

DRUGS (3)
  1. TEQUIN [Suspect]
     Indication: KIDNEY INFECTION
     Route: 048
     Dates: start: 20030701, end: 20030701
  2. TEQUIN [Suspect]
     Indication: BRONCHITIS
     Route: 048
     Dates: start: 20030701, end: 20030701
  3. HYDROCODONE [Concomitant]
     Dates: start: 20030601

REACTIONS (4)
  - DIARRHOEA [None]
  - NAUSEA [None]
  - PYREXIA [None]
  - SYNCOPE [None]
